FAERS Safety Report 4778870-7 (Version None)
Quarter: 2005Q3

REPORT INFORMATION
  Report Type: 
  Country: None (occurrence: None)
  Receive Date: 20050926
  Receipt Date: 20050919
  Transmission Date: 20060218
  Serious: No
  Sender: FDA-Public Use
  Company Number: 2005UW13844

PATIENT
  Age: 49 Year
  Sex: Female
  Weight: 65.8 kg

DRUGS (2)
  1. SEROQUEL [Suspect]
     Indication: ARTHRITIS INFECTIVE
     Route: 048
     Dates: start: 20040301
  2. ASPIRIN [Concomitant]

REACTIONS (7)
  - HAEMOGLOBIN DECREASED [None]
  - MEAN CELL VOLUME DECREASED [None]
  - PROCTALGIA [None]
  - PYREXIA [None]
  - RASH GENERALISED [None]
  - RED BLOOD CELL COUNT INCREASED [None]
  - VAGINAL PAIN [None]
